FAERS Safety Report 8186776-9 (Version None)
Quarter: 2012Q1

REPORT INFORMATION
  Report Type: 
  Country: None (occurrence: None)
  Receive Date: 20120306
  Receipt Date: 20120306
  Transmission Date: 20120608
  Serious: Yes (Death)
  Sender: FDA-Public Use
  Company Number: None

PATIENT
  Age: 47 Year
  Sex: Male
  Weight: 72.574 kg

DRUGS (2)
  1. NALTREXONE HYDROCHLORIDE [Concomitant]
  2. SUBOXONE [Suspect]
     Indication: DRUG DEPENDENCE
     Dosage: 8 MG
     Route: 060
     Dates: start: 20050614, end: 20111214

REACTIONS (5)
  - DEPRESSION [None]
  - ANXIETY [None]
  - COMPLETED SUICIDE [None]
  - GASTROINTESTINAL DISORDER [None]
  - DRUG WITHDRAWAL SYNDROME [None]
